FAERS Safety Report 6941348-6 (Version None)
Quarter: 2010Q3

REPORT INFORMATION
  Report Type: 
  Country: None (occurrence: None)
  Receive Date: 20100825
  Receipt Date: 20100810
  Transmission Date: 20110219
  Serious: Yes (Other)
  Sender: FDA-Public Use
  Company Number: PHHY2010US53313

PATIENT
  Sex: Female

DRUGS (1)
  1. EXJADE [Suspect]
     Indication: SICKLE CELL ANAEMIA
     Dosage: 500 MG, QD
     Route: 048

REACTIONS (7)
  - COLON CANCER [None]
  - HERPES ZOSTER [None]
  - NON-HODGKIN'S LYMPHOMA [None]
  - PLATELET COUNT DECREASED [None]
  - SERUM FERRITIN INCREASED [None]
  - TOOTHACHE [None]
  - WHITE BLOOD CELL COUNT DECREASED [None]
